FAERS Safety Report 21385978 (Version 1)
Quarter: 2022Q3

REPORT INFORMATION
  Report Type: Spontaneous
  Country: KR (occurrence: KR)
  Receive Date: 20220928
  Receipt Date: 20220928
  Transmission Date: 20221027
  Serious: Yes (Hospitalization)
  Sender: FDA-Public Use
  Company Number: KR-ORGANON-O2209KOR001633

PATIENT
  Age: 42 Year
  Sex: Female
  Weight: 44.9 kg

DRUGS (7)
  1. REMERON [Suspect]
     Active Substance: MIRTAZAPINE
     Dosage: 15 MILLIGRAM
     Dates: start: 20151111, end: 20160201
  2. LEVOTHYROXINE SODIUM [Concomitant]
     Active Substance: LEVOTHYROXINE SODIUM
     Dosage: 125 MICROGRAM
     Dates: start: 20151111, end: 20160201
  3. ALPRAZOLAM [Concomitant]
     Active Substance: ALPRAZOLAM
     Dosage: 0.25 MILLIGRAM
     Dates: start: 20151111, end: 20160130
  4. FENTANYL [Concomitant]
     Active Substance: FENTANYL
     Dosage: 150 MICROGRAM
     Dates: start: 20151111, end: 20160201
  5. ACETAMINOPHEN\CODEINE\IBUPROFEN [Concomitant]
     Active Substance: ACETAMINOPHEN\CODEINE\IBUPROFEN
     Dosage: 1 FORMULATION
     Dates: start: 20151111, end: 20160110
  6. DOMPERIDONE [Concomitant]
     Active Substance: DOMPERIDONE
     Dosage: 10 MILLIGRAM
     Dates: start: 20151111, end: 20160110
  7. LACTULOSE [Concomitant]
     Active Substance: LACTULOSE
     Dosage: 1 FORMULATION
     Dates: start: 20151202, end: 20160104

REACTIONS (1)
  - Lower motor neurone lesion [Not Recovered/Not Resolved]

NARRATIVE: CASE EVENT DATE: 20160106
